FAERS Safety Report 6704208-1 (Version None)
Quarter: 2010Q2

REPORT INFORMATION
  Report Type: 
  Country: None (occurrence: None)
  Receive Date: 20100430
  Receipt Date: 20100426
  Transmission Date: 20101027
  Serious: Yes (Death)
  Sender: FDA-Public Use
  Company Number: US-JNJFOC-20100407368

PATIENT
  Sex: Female
  Weight: 45.36 kg

DRUGS (1)
  1. DURAGESIC-100 [Suspect]
     Indication: PAIN
     Route: 062

REACTIONS (4)
  - AGGRESSION [None]
  - DEATH [None]
  - DISTURBANCE IN SOCIAL BEHAVIOUR [None]
  - HALLUCINATION [None]
